FAERS Safety Report 9694877 (Version 3)
Quarter: 2013Q4

REPORT INFORMATION
  Report Type: Spontaneous
  Country: US (occurrence: US)
  Receive Date: 20131119
  Receipt Date: 20131226
  Transmission Date: 20140711
  Serious: Yes (Other)
  Sender: FDA-Public Use
  Company Number: US-PFIZER INC-2013328915

PATIENT
  Age: 62 Year
  Sex: Female

DRUGS (3)
  1. CHANTIX [Suspect]
     Dosage: UNK
  2. EFFEXOR XR [Suspect]
     Indication: ANXIETY
     Dosage: 75 MG, 2X/DAY (BID)
     Route: 048
     Dates: start: 2006, end: 200907
  3. LIPITOR [Suspect]
     Indication: BLOOD CHOLESTEROL
     Dosage: 20 MG, 1X/DAY
     Route: 048
     Dates: start: 200607, end: 200901

REACTIONS (5)
  - Electric shock [Recovered/Resolved]
  - Drug hypersensitivity [Unknown]
  - Neck pain [Recovered/Resolved]
  - Withdrawal syndrome [Recovered/Resolved]
  - Abnormal dreams [Unknown]
